FAERS Safety Report 5531632-5 (Version None)
Quarter: 2007Q4

REPORT INFORMATION
  Report Type: 
  Country: None (occurrence: None)
  Receive Date: 20071203
  Receipt Date: 20071119
  Transmission Date: 20080405
  Serious: Yes (Other)
  Sender: FDA-Public Use
  Company Number: CH-AMGEN-UK250775

PATIENT
  Sex: Female
  Weight: 55 kg

DRUGS (10)
  1. MIMPARA [Suspect]
     Indication: HYPERPARATHYROIDISM SECONDARY
     Route: 048
     Dates: start: 20060713, end: 20070809
  2. ADALAT [Suspect]
     Route: 048
     Dates: start: 20060228, end: 20060829
  3. EPOGEN [Concomitant]
     Route: 058
     Dates: start: 20051215
  4. VENOFER [Concomitant]
     Route: 042
     Dates: start: 20060413
  5. VITAMIN CAP [Concomitant]
     Route: 048
     Dates: start: 20041217
  6. CALCIUM ACETATE [Concomitant]
     Route: 048
     Dates: start: 20060307
  7. BLOPRESS [Concomitant]
     Route: 048
     Dates: start: 20060608
  8. DILATREND [Concomitant]
     Route: 048
     Dates: start: 20060112
  9. RENAGEL [Concomitant]
     Route: 048
     Dates: start: 20050121
  10. DAFALGAN [Concomitant]
     Route: 048
     Dates: start: 20050323

REACTIONS (3)
  - DEPRESSION [None]
  - FATIGUE [None]
  - SLUGGISHNESS [None]
